FAERS Safety Report 12569130 (Version 1)
Quarter: 2016Q3

REPORT INFORMATION
  Report Type: Spontaneous
  Country: US (occurrence: None)
  Receive Date: 20160718
  Receipt Date: 20160718
  Transmission Date: 20161109
  Serious: No
  Sender: FDA-Public Use
  Company Number: None

PATIENT
  Age: 51 Year
  Sex: Female

DRUGS (1)
  1. HUMIRA [Suspect]
     Active Substance: ADALIMUMAB
     Indication: PSORIATIC ARTHROPATHY
     Route: 058
     Dates: start: 20160316, end: 20160528

REACTIONS (5)
  - Injection site erythema [None]
  - Injection site pruritus [None]
  - Injection site swelling [None]
  - Psoriasis [None]
  - Vision blurred [None]

NARRATIVE: CASE EVENT DATE: 20160316
